FAERS Safety Report 12855935 (Version 1)
Quarter: 2016Q4

REPORT INFORMATION
  Report Type: Spontaneous
  Country: NL (occurrence: NL)
  Receive Date: 20161018
  Receipt Date: 20161018
  Transmission Date: 20170207
  Serious: Yes (Other)
  Sender: FDA-Public Use
  Company Number: NL-RANBAXY-2014R1-86391

PATIENT
  Age: 62 Year
  Sex: Female

DRUGS (3)
  1. CODEINE [Interacting]
     Active Substance: CODEINE
     Indication: PRODUCT USED FOR UNKNOWN INDICATION
     Dosage: 15 MG, QD
     Route: 065
  2. FLUOXETINE [Suspect]
     Active Substance: FLUOXETINE HYDROCHLORIDE
     Indication: PRODUCT USED FOR UNKNOWN INDICATION
     Dosage: 20 MG, QD
     Route: 065
  3. TRAMADOL. [Interacting]
     Active Substance: TRAMADOL
     Indication: PRODUCT USED FOR UNKNOWN INDICATION
     Dosage: 100 MG, QD
     Route: 065

REACTIONS (5)
  - Torsade de pointes [Recovered/Resolved]
  - Drug level above therapeutic [Unknown]
  - Drug interaction [Recovered/Resolved]
  - Long QT syndrome [Recovered/Resolved]
  - Drug-disease interaction [Recovered/Resolved]
